FAERS Safety Report 4626879-6 (Version None)
Quarter: 2005Q1

REPORT INFORMATION
  Report Type: 
  Country: None (occurrence: None)
  Receive Date: 20050331
  Receipt Date: 20050317
  Transmission Date: 20050727
  Serious: Yes (Hospitalization)
  Sender: FDA-Public Use
  Company Number: 2005BI006070

PATIENT
  Age: 32 Year
  Sex: Male
  Weight: 58.514 kg

DRUGS (4)
  1. AVONEX [Suspect]
     Indication: MULTIPLE SCLEROSIS
     Dosage: 30 UG;QW;IM
     Route: 030
     Dates: start: 19960101
  2. AVONEX [Suspect]
     Indication: MULTIPLE SCLEROSIS
     Dosage: SEE IMAGE
     Route: 030
     Dates: end: 20040701
  3. AVONEX [Suspect]
     Indication: MULTIPLE SCLEROSIS
     Dosage: SEE IMAGE
     Route: 030
     Dates: start: 19960101
  4. AVONEX [Suspect]
     Indication: MULTIPLE SCLEROSIS
     Dosage: SEE IMAGE
     Route: 030
     Dates: start: 20040901

REACTIONS (16)
  - AGGRESSION [None]
  - ANGER [None]
  - BACK PAIN [None]
  - BLOOD TEST ABNORMAL [None]
  - BRAIN STEM SYNDROME [None]
  - CONDITION AGGRAVATED [None]
  - DEPRESSION [None]
  - DYSPHAGIA [None]
  - DYSPNOEA [None]
  - INCONTINENCE [None]
  - LOSS OF CONSCIOUSNESS [None]
  - MULTIPLE SCLEROSIS [None]
  - MUSCLE SPASMS [None]
  - SLEEP DISORDER [None]
  - STARING [None]
  - URINARY TRACT INFECTION [None]
